FAERS Safety Report 6864104-6 (Version None)
Quarter: 2010Q3

REPORT INFORMATION
  Report Type: 
  Country: None (occurrence: None)
  Receive Date: 20100721
  Receipt Date: 20080606
  Transmission Date: 20110219
  Serious: No
  Sender: FDA-Public Use
  Company Number: US-PFIZER INC-2008023774

PATIENT
  Sex: Female
  Weight: 74.84 kg

DRUGS (9)
  1. CHANTIX [Suspect]
     Indication: SMOKING CESSATION THERAPY
     Route: 048
     Dates: start: 20080313
  2. BUSPIRONE [Concomitant]
  3. KLONOPIN [Concomitant]
  4. TEMAZEPAM [Concomitant]
  5. AMITRIPTYLINE HYDROCHLORIDE [Concomitant]
  6. PERCOCET [Concomitant]
  7. METHOCARBAMOL [Concomitant]
  8. PRELIEF [Concomitant]
  9. STOOL SOFTENER [Concomitant]

REACTIONS (10)
  - ABDOMINAL DISCOMFORT [None]
  - ABDOMINAL PAIN UPPER [None]
  - CONSTIPATION [None]
  - DYSGEUSIA [None]
  - EMERGENCY CARE [None]
  - MALAISE [None]
  - NAUSEA [None]
  - PAIN [None]
  - PRODUCT QUALITY ISSUE [None]
  - VOMITING [None]
